FAERS Safety Report 16189883 (Version 1)
Quarter: 2019Q2

REPORT INFORMATION
  Report Type: Spontaneous
  Country: HU (occurrence: HU)
  Receive Date: 20190412
  Receipt Date: 20190412
  Transmission Date: 20190711
  Serious: Yes (Other)
  Sender: FDA-Public Use
  Company Number: HU-PFIZER INC-2019153101

PATIENT
  Age: 68 Year
  Sex: Female

DRUGS (5)
  1. JAKAVI [Suspect]
     Active Substance: RUXOLITINIB
     Dosage: 10 MILLIGRAM, QD
     Route: 065
     Dates: start: 20181119
  2. JAKAVI [Suspect]
     Active Substance: RUXOLITINIB
     Dosage: 5 MILLIGRAM, QD
     Route: 065
  3. PANTOPRAZOLE [Suspect]
     Active Substance: PANTOPRAZOLE
     Dosage: 80 MILLIGRAM, QD
     Route: 065
     Dates: start: 20180808
  4. LITALIR [Concomitant]
     Active Substance: HYDROXYUREA
     Dosage: UNK UNK, QD
     Route: 065
     Dates: start: 20180718, end: 20181018
  5. JAKAVI [Suspect]
     Active Substance: RUXOLITINIB
     Indication: POLYCYTHAEMIA VERA
     Dosage: 20 MILLIGRAM, QD
     Route: 065
     Dates: start: 20181018, end: 20181119

REACTIONS (3)
  - Abdominal pain upper [Unknown]
  - Thrombocytopenia [Recovered/Resolved]
  - Gastrointestinal toxicity [Unknown]

NARRATIVE: CASE EVENT DATE: 20181018
